FAERS Safety Report 9879665 (Version 2)
Quarter: 2014Q1

REPORT INFORMATION
  Report Type: Report from Study
  Country: DE (occurrence: DE)
  Receive Date: 20140206
  Receipt Date: 20140308
  Transmission Date: 20141002
  Serious: Yes (Hospitalization)
  Sender: FDA-Public Use
  Company Number: DE-ABBVIE-14P-062-1196465-00

PATIENT
  Sex: Female

DRUGS (3)
  1. HUMIRA [Suspect]
     Indication: COLITIS ULCERATIVE
     Route: 058
     Dates: start: 20131023, end: 20131204
  2. HUMIRA [Suspect]
     Route: 058
     Dates: start: 20131204, end: 20140131
  3. PENTASA [Concomitant]
     Indication: PRODUCT USED FOR UNKNOWN INDICATION

REACTIONS (3)
  - Weight decreased [Recovering/Resolving]
  - Colitis ulcerative [Recovering/Resolving]
  - Drug effect decreased [Not Recovered/Not Resolved]
